FAERS Safety Report 26085693 (Version 2)
Quarter: 2025Q4

REPORT INFORMATION
  Report Type: Spontaneous
  Country: BR (occurrence: BR)
  Receive Date: 20251125
  Receipt Date: 20251210
  Transmission Date: 20260117
  Serious: Yes (Death)
  Sender: ROCHE
  Company Number: BR-ROCHE-10000442665

PATIENT
  Sex: Male

DRUGS (1)
  1. TECENTRIQ [Suspect]
     Active Substance: ATEZOLIZUMAB
     Indication: Product used for unknown indication
     Dosage: STRENGTH: 1200 MG/20 ML?60 MG/ML - VIAL 20 ML?SOLUTION FOR DILUTION FOR INFUSION?MANUFACTURE DATE: APR-2023
     Route: 042

REACTIONS (2)
  - General physical health deterioration [Unknown]
  - Death [Fatal]
